FAERS Safety Report 8132122-6 (Version None)
Quarter: 2012Q1

REPORT INFORMATION
  Report Type: 
  Country: None (occurrence: None)
  Receive Date: 20120213
  Receipt Date: 20120203
  Transmission Date: 20120608
  Serious: Yes (Other)
  Sender: FDA-Public Use
  Company Number: US-PFIZER INC-2012032988

PATIENT
  Sex: Female

DRUGS (2)
  1. PROVIGIL [Concomitant]
     Indication: SLEEP DISORDER
     Dosage: 200 MG, DAILY
  2. NORGESTREL AND ETHINYL ESTRADIOL [Suspect]
     Dosage: UNK
     Dates: start: 20120101, end: 20120201

REACTIONS (4)
  - ABDOMINAL DISCOMFORT [None]
  - VAGINAL HAEMORRHAGE [None]
  - WEIGHT INCREASED [None]
  - MUSCLE SPASMS [None]
